FAERS Safety Report 17133678 (Version 1)
Quarter: 2019Q4

REPORT INFORMATION
  Report Type: Spontaneous
  Country: US (occurrence: US)
  Receive Date: 20191210
  Receipt Date: 20191210
  Transmission Date: 20200122
  Serious: No
  Sender: FDA-Public Use
  Company Number: US-UCBSA-2016032457

PATIENT
  Sex: Male
  Weight: 86.1 kg

DRUGS (1)
  1. VIMPAT [Suspect]
     Active Substance: LACOSAMIDE
     Indication: SEIZURE
     Dosage: 100MG AM AND 150MG PM, 2X/DAY (BID)

REACTIONS (1)
  - Amnesia [Not Recovered/Not Resolved]
